FAERS Safety Report 8344128-2 (Version None)
Quarter: 2012Q2

REPORT INFORMATION
  Report Type: 
  Country: None (occurrence: None)
  Receive Date: 20120508
  Receipt Date: 20120502
  Transmission Date: 20120825
  Serious: Yes (Hospitalization, Other)
  Sender: FDA-Public Use
  Company Number: PHHY2011BR75427

PATIENT
  Sex: Female
  Weight: 70 kg

DRUGS (12)
  1. GLICAMIN [Concomitant]
     Indication: DIABETES MELLITUS
     Dosage: 5 MG, BID, 2 TABLETS AT ONCE, TWICE DAILY ON MORNING AND AFTERNOON
     Route: 048
     Dates: start: 19920101
  2. ZOLEDRONOC ACID [Suspect]
     Indication: OSTEOPENIA
  3. OMEPRAZOLE [Concomitant]
     Dosage: 20 MG, BID, 1 TABLET TWICE DAILY ON MORNING AND AT NIGHT
     Route: 048
     Dates: start: 20060101
  4. LUFTAL [Concomitant]
     Indication: FLATULENCE
     Dosage: 1 TABLET TWICE DAILY ON MORNING AND AT NIGHT
     Route: 048
     Dates: start: 20060101
  5. PAROXETINE [Concomitant]
     Indication: DEPRESSION
     Dosage: 20 MG, 2 TABLETS DAILY, ORAL
     Route: 048
     Dates: start: 20070401
  6. PAROXETINE [Concomitant]
     Indication: NERVOUSNESS
  7. PROMETHAZINE [Concomitant]
     Dosage: 1 TABLET WHEN WAS LIE DOWN
     Route: 048
     Dates: start: 20080101
  8. SERTRALINE HYDROCHLORIDE [Concomitant]
     Indication: NERVOUSNESS
     Dosage: 50 MG, 2 TABLETS DAILY
     Dates: start: 20070401
  9. ZOLEDRONOC ACID [Suspect]
     Indication: OSTEOPOROSIS
     Dosage: 5 MG/100 ML
     Route: 042
     Dates: start: 20100801
  10. DOMPERIDONE [Concomitant]
     Indication: DYSPEPSIA
     Dosage: 10 MG, 1 TABLET EVERY 8 HOURS
     Route: 048
     Dates: start: 20070401
  11. CLONAZEPAM [Concomitant]
     Indication: INSOMNIA
     Dosage: 2 MG, 2 TABLETS AT ONCE AT NIGHT
     Route: 048
     Dates: start: 20070401
  12. SIMETHICONE [Concomitant]
     Indication: FLATULENCE
     Dosage: 240 DROPS FRACTIONAL A DAY
     Dates: start: 20070401

REACTIONS (9)
  - BONE PAIN [None]
  - OESOPHAGEAL PAIN [None]
  - GENERAL PHYSICAL HEALTH DETERIORATION [None]
  - GAIT DISTURBANCE [None]
  - FOOT FRACTURE [None]
  - PAIN [None]
  - OESOPHAGEAL DISORDER [None]
  - WRIST FRACTURE [None]
  - INSOMNIA [None]
